FAERS Safety Report 17848805 (Version 3)
Quarter: 2020Q3

REPORT INFORMATION
  Report Type: Report from Study
  Country: GB (occurrence: GB)
  Receive Date: 20200602
  Receipt Date: 20200714
  Transmission Date: 20201103
  Serious: Yes (Other)
  Sender: FDA-Public Use
  Company Number: NVSC2020GB122697

PATIENT
  Age: 38 Year
  Sex: Female

DRUGS (3)
  1. SANDOSTATIN LAR DEPOT [Suspect]
     Active Substance: OCTREOTIDE ACETATE
     Indication: ACROMEGALY
     Dosage: 20 MG, QMO (EVERY 28 DAYS)(SOLUTION)
     Route: 030
     Dates: start: 20200501, end: 20200629
  2. SANDOSTATIN LAR DEPOT [Suspect]
     Active Substance: OCTREOTIDE ACETATE
  3. SANDOSTATIN LAR DEPOT [Suspect]
     Active Substance: OCTREOTIDE ACETATE
     Dosage: UNK

REACTIONS (13)
  - Blister [Unknown]
  - Headache [Unknown]
  - Hair colour changes [Unknown]
  - Illness [Unknown]
  - Faeces soft [Unknown]
  - Constipation [Unknown]
  - Epilepsy [Unknown]
  - Abdominal discomfort [Unknown]
  - Alopecia [Unknown]
  - Diarrhoea [Unknown]
  - Amnesia [Unknown]
  - Blood glucose fluctuation [Unknown]
  - Weight decreased [Unknown]

NARRATIVE: CASE EVENT DATE: 20200501
